FAERS Safety Report 7568961-X (Version None)
Quarter: 2011Q2

REPORT INFORMATION
  Report Type: 
  Country: None (occurrence: None)
  Receive Date: 20110623
  Receipt Date: 20110623
  Transmission Date: 20111010
  Serious: Yes (Hospitalization)
  Sender: FDA-Public Use
  Company Number: DE-UCBSA-000357

PATIENT
  Sex: Male
  Weight: 75 kg

DRUGS (7)
  1. NEUPRO [Suspect]
     Route: 062
     Dates: start: 20080829
  2. ATACAND HCT [Concomitant]
     Indication: HYPERTENSION
     Dosage: 16/12.5
     Dates: start: 20080418
  3. AMITRIPTYLINE HCL [Concomitant]
     Indication: ANXIETY DISORDER
     Dates: start: 20070704
  4. NEUPRO [Suspect]
     Indication: PARKINSON'S DISEASE
     Route: 062
     Dates: start: 20060824, end: 20080828
  5. ASPIRIN [Concomitant]
     Indication: PROPHYLAXIS
     Dates: start: 20060601
  6. RAMIPRIL [Concomitant]
     Indication: HYPERTENSION
     Dates: start: 20060601, end: 20070319
  7. RAMIPRIL [Concomitant]
     Dates: start: 20070320, end: 20080418

REACTIONS (1)
  - HEAD INJURY [None]
